FAERS Safety Report 6529525-X (Version None)
Quarter: 2010Q1

REPORT INFORMATION
  Report Type: 
  Country: None (occurrence: None)
  Receive Date: 20100107
  Receipt Date: 20091228
  Transmission Date: 20100710
  Serious: Yes (Hospitalization)
  Sender: FDA-Public Use
  Company Number: FR-SOLVAY-00209008023

PATIENT
  Age: 77 Year
  Sex: Female

DRUGS (10)
  1. COVERSYL 4 MG TABLET [Suspect]
     Indication: DRUG USE FOR UNKNOWN INDICATION
     Dosage: DAILY DOSE: 4 MILLIGRAM(S)
     Route: 048
     Dates: end: 20080801
  2. DIAMICRON 30 MG MODIFIED-RELEASE FILM-COATED TABLET [Concomitant]
     Indication: DRUG USE FOR UNKNOWN INDICATION
     Dosage: DAILY DOSE:  UNKNOWN
     Route: 065
     Dates: end: 20080801
  3. DIAMICRON 30 MG MODIFIED-RELEASE FILM-COATED TABLET [Concomitant]
     Dosage: DAILY DOSE:  UNKNOWN
     Route: 065
  4. BISOPROLOL [Concomitant]
     Indication: DRUG USE FOR UNKNOWN INDICATION
     Dosage: DAILY DOSE:  UNKNOWN
     Route: 065
  5. LASILIX [Suspect]
     Indication: DRUG USE FOR UNKNOWN INDICATION
     Dosage: DAILY DOSE: 60 MILLIGRAM(S)
     Route: 048
     Dates: end: 20080801
  6. LASILIX [Suspect]
     Dosage: DAILY DOSE: 60 MILLIGRAM(S)
     Route: 048
     Dates: end: 20090801
  7. DIFFU K [Concomitant]
     Indication: DRUG USE FOR UNKNOWN INDICATION
     Dosage: DAILY DOSE:  UNKNOWN
     Route: 065
  8. VASTAREL NOS TABLET [Concomitant]
     Indication: DRUG USE FOR UNKNOWN INDICATION
     Dosage: DAILY DOSE:  UNKNOWN
     Route: 065
  9. TAHOR [Concomitant]
     Indication: DRUG USE FOR UNKNOWN INDICATION
     Dosage: DAILY DOSE:  UNKNOWN
     Route: 065
  10. HEMIGOXINE NATIVELLE [Concomitant]
     Indication: DRUG USE FOR UNKNOWN INDICATION
     Dosage: DAILY DOSE:  UNKNOWN
     Route: 065

REACTIONS (2)
  - BACTERIAL PYELONEPHRITIS [None]
  - RENAL FAILURE [None]
